FAERS Safety Report 6819961-6 (Version None)
Quarter: 2010Q3

REPORT INFORMATION
  Report Type: 
  Country: None (occurrence: None)
  Receive Date: 20100707
  Receipt Date: 20100623
  Transmission Date: 20110219
  Serious: Yes (Hospitalization, Other)
  Sender: FDA-Public Use
  Company Number: US-ROCHE-712208

PATIENT
  Age: 62 Year
  Sex: Female
  Weight: 70.3 kg

DRUGS (7)
  1. VALIUM [Suspect]
     Indication: ANXIETY
     Dosage: ONE TIME
     Route: 042
     Dates: start: 20100507, end: 20100507
  2. KLONOPIN [Suspect]
     Indication: ANXIETY
     Dosage: CO-INDICATION: DEPRESSION AND STRESS
     Route: 048
     Dates: start: 20100507
  3. KLONOPIN [Suspect]
     Dosage: TAPERED DOSAGE
     Route: 048
  4. MAALOX [Concomitant]
  5. PRILOSEC [Concomitant]
  6. LEXAPRO [Concomitant]
  7. XANAX [Concomitant]

REACTIONS (21)
  - ABNORMAL DREAMS [None]
  - ANOSMIA [None]
  - DIARRHOEA [None]
  - FALL [None]
  - FEELING ABNORMAL [None]
  - GASTRITIS [None]
  - GASTROOESOPHAGEAL REFLUX DISEASE [None]
  - HEART RATE DECREASED [None]
  - HIATUS HERNIA [None]
  - HYPOPHAGIA [None]
  - ILL-DEFINED DISORDER [None]
  - IMMOBILE [None]
  - IMPAIRED DRIVING ABILITY [None]
  - NAUSEA [None]
  - SOCIAL AVOIDANT BEHAVIOUR [None]
  - SOMNOLENCE [None]
  - SPEECH DISORDER [None]
  - TIC [None]
  - VARICES OESOPHAGEAL [None]
  - VOMITING [None]
  - WEIGHT DECREASED [None]
